FAERS Safety Report 7232346-6 (Version None)
Quarter: 2011Q1

REPORT INFORMATION
  Report Type: 
  Country: None (occurrence: None)
  Receive Date: 20110106
  Receipt Date: 20101222
  Transmission Date: 20110831
  Serious: Yes (Hospitalization)
  Sender: FDA-Public Use
  Company Number: PHHY2010JP88061

PATIENT
  Age: 63 Year
  Sex: Male

DRUGS (3)
  1. MULTIVITAMIN [Concomitant]
  2. LUCENTIS [Suspect]
     Indication: MACULAR DEGENERATION
     Dosage: 0.05 ML DAILY EY
     Dates: start: 20100906, end: 20100906
  3. VISUDYNE [Suspect]
     Indication: MACULAR DEGENERATION
     Dates: start: 20100705, end: 20100705

REACTIONS (1)
  - LIVER DISORDER [None]
